APPROVED DRUG PRODUCT: ISOSORBIDE DINITRATE
Active Ingredient: ISOSORBIDE DINITRATE
Strength: 20MG
Dosage Form/Route: TABLET;ORAL
Application: A089367 | Product #001 | TE Code: AB
Applicant: SANDOZ INC
Approved: Apr 7, 1988 | RLD: No | RS: No | Type: RX